FAERS Safety Report 12963358 (Version 1)
Quarter: 2016Q4

REPORT INFORMATION
  Report Type: Spontaneous
  Country: GB (occurrence: GB)
  Receive Date: 20161122
  Receipt Date: 20161122
  Transmission Date: 20170207
  Serious: Yes (Death, Other)
  Sender: FDA-Public Use
  Company Number: GB-AUROBINDO-AUR-APL-2014-11130

PATIENT
  Age: 37 Year
  Sex: Male
  Weight: 65.2 kg

DRUGS (16)
  1. IBUPROFEN. [Suspect]
     Active Substance: IBUPROFEN
     Indication: PRODUCT USED FOR UNKNOWN INDICATION
     Dosage: UNK
     Route: 065
  2. SUBUTEX [Suspect]
     Active Substance: BUPRENORPHINE HYDROCHLORIDE
     Indication: PRODUCT USED FOR UNKNOWN INDICATION
     Dosage: UNK
     Route: 065
  3. HEROIN [Suspect]
     Active Substance: DIACETYLMORPHINE
     Indication: PRODUCT USED FOR UNKNOWN INDICATION
     Dosage: UNK
     Route: 051
     Dates: start: 201407, end: 201407
  4. ECSTASY [Suspect]
     Active Substance: METHYLENEDIOXYMETHAMPHETAMINE
     Dosage: UNK
     Route: 065
     Dates: start: 20140730, end: 20140730
  5. SUBUTEX [Suspect]
     Active Substance: BUPRENORPHINE HYDROCHLORIDE
     Indication: PRODUCT USED FOR UNKNOWN INDICATION
  6. DIAZEPAM. [Suspect]
     Active Substance: DIAZEPAM
     Indication: PRODUCT USED FOR UNKNOWN INDICATION
     Dosage: UNK
     Route: 065
     Dates: start: 20140730, end: 20140730
  7. DIAZEPAM. [Suspect]
     Active Substance: DIAZEPAM
     Indication: PRODUCT USED FOR UNKNOWN INDICATION
     Dosage: 7 TABLETS
     Route: 065
     Dates: start: 20140729, end: 20140729
  8. DIAZEPAM. [Suspect]
     Active Substance: DIAZEPAM
     Dosage: UNK
     Route: 065
     Dates: start: 201407, end: 201407
  9. NITRAZEPAM [Suspect]
     Active Substance: NITRAZEPAM
     Dosage: UNK
     Route: 065
     Dates: start: 201407, end: 201407
  10. ECSTASY [Suspect]
     Active Substance: METHYLENEDIOXYMETHAMPHETAMINE
     Indication: PRODUCT USED FOR UNKNOWN INDICATION
     Dosage: UNK
     Route: 065
     Dates: start: 201407, end: 201407
  11. COCAINE [Suspect]
     Active Substance: COCAINE
     Indication: PRODUCT USED FOR UNKNOWN INDICATION
     Dosage: UNK
     Route: 065
  12. ALCOHOL. [Suspect]
     Active Substance: ALCOHOL
     Dosage: AROUND 4 CANS OF LAGER
     Route: 048
     Dates: start: 20140729, end: 20140729
  13. NITRAZEPAM [Suspect]
     Active Substance: NITRAZEPAM
     Indication: PRODUCT USED FOR UNKNOWN INDICATION
     Dosage: 3 TABLETS
     Route: 065
     Dates: start: 20140729, end: 20140729
  14. ECSTASY [Suspect]
     Active Substance: METHYLENEDIOXYMETHAMPHETAMINE
     Dosage: UNK
     Route: 065
     Dates: start: 20140729, end: 20140729
  15. ALCOHOL. [Suspect]
     Active Substance: ALCOHOL
     Indication: PRODUCT USED FOR UNKNOWN INDICATION
     Dosage: UNK
     Route: 048
     Dates: start: 201407, end: 201407
  16. BUPRENORPHINE. [Suspect]
     Active Substance: BUPRENORPHINE
     Indication: PRODUCT USED FOR UNKNOWN INDICATION
     Dosage: UNK
     Route: 065

REACTIONS (3)
  - Alcohol abuse [Recovered/Resolved]
  - Toxicity to various agents [Fatal]
  - Substance abuse [Recovered/Resolved]

NARRATIVE: CASE EVENT DATE: 201407
